FAERS Safety Report 8618836-X (Version None)
Quarter: 2012Q3

REPORT INFORMATION
  Report Type: 
  Country: None (occurrence: None)
  Receive Date: 20120824
  Receipt Date: 20120814
  Transmission Date: 20120928
  Serious: Yes (Other)
  Sender: FDA-Public Use
  Company Number: US-JNJFOC-20100804690

PATIENT
  Sex: Female
  Weight: 60.78 kg

DRUGS (3)
  1. LEVAQUIN [Suspect]
     Indication: BRONCHITIS
     Route: 048
     Dates: start: 20051201, end: 20080624
  2. LEVAQUIN [Suspect]
     Indication: ANIMAL BITE
     Route: 048
     Dates: start: 20051201, end: 20080624
  3. LEVAQUIN [Suspect]
     Indication: SINUSITIS
     Route: 048
     Dates: start: 20051201, end: 20080624

REACTIONS (6)
  - TENDONITIS [None]
  - ROTATOR CUFF SYNDROME [None]
  - JOINT INJURY [None]
  - TENDON DISORDER [None]
  - TENOSYNOVITIS STENOSANS [None]
  - DEPRESSION [None]
